FAERS Safety Report 4779756-4 (Version None)
Quarter: 2005Q3

REPORT INFORMATION
  Report Type: 
  Country: None (occurrence: None)
  Receive Date: 20050927
  Receipt Date: 20050913
  Transmission Date: 20060218
  Serious: Yes (Other)
  Sender: FDA-Public Use
  Company Number: NL-AMGEN-UK150174

PATIENT
  Sex: Male

DRUGS (1)
  1. ARANESP [Suspect]
     Indication: RENAL FAILURE CHRONIC
     Route: 065

REACTIONS (2)
  - ANTI-ERYTHROPOIETIN ANTIBODY POSITIVE [None]
  - THERAPEUTIC RESPONSE DECREASED [None]
